FAERS Safety Report 8297883-4 (Version None)
Quarter: 2012Q2

REPORT INFORMATION
  Report Type: 
  Country: None (occurrence: None)
  Receive Date: 20120419
  Receipt Date: 20120411
  Transmission Date: 20120825
  Serious: Yes (Hospitalization, Other)
  Sender: FDA-Public Use
  Company Number: PHHY2012DE004039

PATIENT
  Age: 65 Year
  Sex: Male

DRUGS (1)
  1. CLOZAPINE [Suspect]
     Indication: SCHIZOAFFECTIVE DISORDER BIPOLAR TYPE
     Dosage: 350 MG/DAY
     Route: 048
     Dates: start: 20010101

REACTIONS (5)
  - DYSPHAGIA [None]
  - PNEUMONIA ASPIRATION [None]
  - ASPIRATION [None]
  - PHARYNGITIS [None]
  - INFLAMMATION [None]
